FAERS Safety Report 15053459 (Version 1)
Quarter: 2018Q2

REPORT INFORMATION
  Report Type: Spontaneous
  Country: US (occurrence: US)
  Receive Date: 20180622
  Receipt Date: 20180622
  Transmission Date: 20180711
  Serious: No
  Sender: FDA-Public Use
  Company Number: US-AMGEN-USASP2015082500

PATIENT
  Age: 58 Year
  Sex: Female

DRUGS (1)
  1. NPLATE [Suspect]
     Active Substance: ROMIPLOSTIM
     Indication: IMMUNE THROMBOCYTOPENIC PURPURA
     Dosage: UNK UNK, UNK
     Route: 065
     Dates: end: 201412

REACTIONS (4)
  - Red blood cell count abnormal [Recovering/Resolving]
  - White blood cell disorder [Recovering/Resolving]
  - Platelet count decreased [Recovering/Resolving]
  - Fatigue [Recovering/Resolving]
